FAERS Safety Report 13656759 (Version 1)
Quarter: 2017Q2

REPORT INFORMATION
  Report Type: Spontaneous
  Country: US (occurrence: US)
  Receive Date: 20170615
  Receipt Date: 20170615
  Transmission Date: 20170830
  Serious: Yes (Death, Hospitalization)
  Sender: FDA-Public Use
  Company Number: US-INSYS THERAPEUTICS, INC-INS201706-000350

PATIENT
  Age: 67 Year
  Sex: Male

DRUGS (1)
  1. SUBSYS [Suspect]
     Active Substance: FENTANYL
     Indication: ANALGESIC THERAPY
     Route: 060
     Dates: start: 20170418

REACTIONS (2)
  - Pneumonia [Unknown]
  - Mental status changes [Unknown]

NARRATIVE: CASE EVENT DATE: 20170511
